FAERS Safety Report 7837911-0 (Version None)
Quarter: 2011Q4

REPORT INFORMATION
  Report Type: 
  Country: None (occurrence: None)
  Receive Date: 20111024
  Receipt Date: 20110504
  Transmission Date: 20120403
  Serious: No
  Sender: FDA-Public Use
  Company Number: US-ABBOTT-11P-163-0724348-00

PATIENT
  Sex: Female

DRUGS (2)
  1. LUPRON DEPOT [Suspect]
     Indication: UTERINE LEIOMYOMA
  2. LUPRON DEPOT [Suspect]
     Indication: MENORRHAGIA
     Dosage: 2 INJECTIONS
     Route: 050
     Dates: start: 20110309, end: 20110504

REACTIONS (4)
  - FEELING ABNORMAL [None]
  - CONFUSIONAL STATE [None]
  - HYPERTENSION [None]
  - HEAD DISCOMFORT [None]
